FAERS Safety Report 9404626 (Version 1)
Quarter: 2013Q3

REPORT INFORMATION
  Report Type: Report from Study
  Country: CO (occurrence: CO)
  Receive Date: 20130717
  Receipt Date: 20130717
  Transmission Date: 20140515
  Serious: Yes (Death)
  Sender: FDA-Public Use
  Company Number: CO-SANOFI-AVENTIS-2013SA069535

PATIENT
  Age: 64 Year
  Sex: Female

DRUGS (5)
  1. LANTUS [Suspect]
     Indication: DIABETES MELLITUS
     Dosage: DOSE:57 UNIT(S)
     Route: 058
     Dates: end: 20130325
  2. ACETYLSALICYLIC ACID [Suspect]
     Indication: DEEP VEIN THROMBOSIS
     Route: 048
     Dates: end: 20130325
  3. INSULIN [Concomitant]
     Dosage: DOSE:5 UNIT(S)
     Route: 058
     Dates: end: 20130325
  4. OMEPRAZOLE [Concomitant]
     Route: 048
     Dates: end: 20130325
  5. LOSARTAN [Concomitant]
     Indication: HYPERTENSION
     Route: 048
     Dates: end: 20130325

REACTIONS (2)
  - Deep vein thrombosis [Fatal]
  - Respiratory failure [Fatal]
